FAERS Safety Report 26121863 (Version 1)
Quarter: 2025Q4

REPORT INFORMATION
  Report Type: Report from Study
  Country: EU (occurrence: EU)
  Receive Date: 20251204
  Receipt Date: 20251204
  Transmission Date: 20260118
  Serious: Yes (Hospitalization)
  Sender: JOHNSON AND JOHNSON
  Company Number: None

PATIENT
  Age: 22 Year
  Sex: Male

DRUGS (3)
  1. INFLIXIMAB [Suspect]
     Active Substance: INFLIXIMAB
     Indication: Product used for unknown indication
     Dosage: 5 MG/KG EVERY 6 WEEKS
     Route: 041
     Dates: start: 20220405, end: 20220628
  2. AZATHIOPRINE [Suspect]
     Active Substance: AZATHIOPRINE
     Indication: Product used for unknown indication
     Dosage: 1 TABLET / 24 H - ORAL ROUTE
     Route: 048
     Dates: start: 20220103, end: 20220715
  3. Mesalazine 4,000 mg modified-release oral solution/suspension, 30 sach [Concomitant]
     Indication: Product used for unknown indication
     Dosage: 1 SACHETS / 24 H - ORAL ROUTE
     Route: 048
     Dates: start: 20220906, end: 20221006

REACTIONS (2)
  - Cytomegalovirus colitis [Recovered/Resolved]
  - Opportunistic infection [Recovered/Resolved]

NARRATIVE: CASE EVENT DATE: 20220628
